FAERS Safety Report 22059065 (Version 1)
Quarter: 2023Q1

REPORT INFORMATION
  Report Type: Report from Study
  Country: ES (occurrence: ES)
  Receive Date: 20230303
  Receipt Date: 20230303
  Transmission Date: 20230417
  Serious: Yes (Death, Hospitalization, Other)
  Sender: FDA-Public Use
  Company Number: ES-JNJFOC-20210751168

PATIENT
  Age: 83 Year
  Sex: Male
  Weight: 77 kg

DRUGS (10)
  1. DARATUMUMAB [Suspect]
     Active Substance: DARATUMUMAB
     Indication: Plasma cell myeloma
     Dates: start: 20191122, end: 20191226
  2. REVLIMID [Suspect]
     Active Substance: LENALIDOMIDE
     Indication: Plasma cell myeloma
     Route: 065
     Dates: start: 20191122, end: 20191203
  3. DEXAMETHASONE [Suspect]
     Active Substance: DEXAMETHASONE
     Indication: Plasma cell myeloma
     Route: 065
     Dates: start: 20191122
  4. GLIMEPIRIDE [Concomitant]
     Active Substance: GLIMEPIRIDE
     Indication: Type 2 diabetes mellitus
  5. FUROSEMIDE [Concomitant]
     Active Substance: FUROSEMIDE
     Indication: Renal failure
  6. ATERINA [SULODEXIDE] [Concomitant]
     Indication: Myocardial ischaemia
  7. BISOPROLOL [Concomitant]
     Active Substance: BISOPROLOL
     Indication: Myocardial ischaemia
  8. RAMIPRIL [Concomitant]
     Active Substance: RAMIPRIL
     Indication: Myocardial ischaemia
  9. CANDESARTAN [Concomitant]
     Active Substance: CANDESARTAN
     Indication: Myocardial ischaemia
  10. ATORVASTATIN [Concomitant]
     Active Substance: ATORVASTATIN
     Indication: Myocardial ischaemia

REACTIONS (9)
  - Respiratory tract infection [Recovered/Resolved]
  - Atrial fibrillation [Recovered/Resolved]
  - Neutropenia [Unknown]
  - Aspiration [Fatal]
  - Chronic kidney disease [Not Recovered/Not Resolved]
  - Cardiac failure congestive [Recovered/Resolved]
  - Plasma cell myeloma [Not Recovered/Not Resolved]
  - Respiratory failure [Unknown]
  - Clostridium difficile colitis [Unknown]

NARRATIVE: CASE EVENT DATE: 20191203
